FAERS Safety Report 6870562-3 (Version None)
Quarter: 2010Q3

REPORT INFORMATION
  Report Type: 
  Country: None (occurrence: None)
  Receive Date: 20100723
  Receipt Date: 20100712
  Transmission Date: 20110219
  Serious: Yes (Hospitalization, Other)
  Sender: FDA-Public Use
  Company Number: US-ELI_LILLY_AND_COMPANY-US201007003667

PATIENT
  Sex: Female

DRUGS (3)
  1. FORTEO [Suspect]
     Indication: OSTEOPOROSIS
     Dosage: 20 UG, DAILY (1/D)
     Dates: start: 20090101
  2. PLAQUENIL [Concomitant]
  3. PREDNISONE [Concomitant]

REACTIONS (7)
  - BLOOD POTASSIUM DECREASED [None]
  - BONE DISORDER [None]
  - CATARACT [None]
  - DRUG HYPERSENSITIVITY [None]
  - INSOMNIA [None]
  - SYSTEMIC LUPUS ERYTHEMATOSUS [None]
  - THROMBOSIS [None]
